FAERS Safety Report 9703040 (Version 3)
Quarter: 2013Q4

REPORT INFORMATION
  Report Type: Spontaneous
  Country: US (occurrence: US)
  Receive Date: 20131122
  Receipt Date: 20131126
  Transmission Date: 20140711
  Serious: Yes (Life-Threatening)
  Sender: FDA-Public Use
  Company Number: US-009507513-1310USA007644

PATIENT
  Age: 45 Year
  Sex: Male
  Weight: 92.52 kg

DRUGS (1)
  1. LIPTRUZET [Suspect]
     Indication: BLOOD CHOLESTEROL INCREASED
     Dosage: ONCE DAILY IN THE EVENING
     Route: 048
     Dates: start: 20130924

REACTIONS (5)
  - Dysgeusia [Recovered/Resolved]
  - Upper respiratory tract infection [Unknown]
  - Exposure to toxic agent [Recovered/Resolved]
  - Drug dose omission [Unknown]
  - Medication error [Unknown]
